FAERS Safety Report 9283865 (Version 4)
Quarter: 2013Q3

REPORT INFORMATION
  Report Type: Report from Study
  Country: US (occurrence: US)
  Receive Date: 20130510
  Receipt Date: 20130829
  Transmission Date: 20140515
  Serious: Yes (Death, Life-Threatening, Hospitalization, Other)
  Sender: FDA-Public Use
  Company Number: PHEH2013US008666

PATIENT
  Age: 67 Year
  Sex: Female
  Weight: 63.1 kg

DRUGS (10)
  1. GILENYA [Suspect]
     Indication: MULTIPLE SCLEROSIS
     Dosage: 0.5 MG, QD
     Route: 048
     Dates: start: 201211, end: 20130428
  2. AMPYRA [Concomitant]
     Dosage: 10 MG, UNK
     Route: 048
     Dates: end: 201304
  3. PRILOSEC [Concomitant]
     Dosage: 20 MG, QD
  4. PROZAC [Concomitant]
     Dosage: 10 MG, QD
  5. FLOMAX ^BOEHRINGER INGELHEIM^ [Concomitant]
     Dosage: 0.4 MG, QD
  6. VITAMIN B12 [Concomitant]
  7. KEFLEX [Concomitant]
     Dosage: 500 MG, QD
  8. ASPIRIN [Concomitant]
     Dosage: 81 MG, QD
  9. DITROPAN [Concomitant]
     Dosage: 5 MG, DAILY
  10. ALEVE [Concomitant]

REACTIONS (9)
  - Death [Fatal]
  - Cerebrovascular accident [Not Recovered/Not Resolved]
  - Hemiparesis [Unknown]
  - Dysphagia [Unknown]
  - VIIth nerve paralysis [Unknown]
  - Asthenia [Unknown]
  - Pulmonary embolism [Unknown]
  - Thrombosis [Unknown]
  - Multiple sclerosis relapse [Unknown]
